FAERS Safety Report 10094996 (Version 1)
Quarter: 2014Q2

REPORT INFORMATION
  Report Type: Spontaneous
  Country: US (occurrence: US)
  Receive Date: 20140422
  Receipt Date: 20140422
  Transmission Date: 20141212
  Serious: No
  Sender: FDA-Public Use
  Company Number: US-BAYER-2014-058413

PATIENT
  Sex: Male

DRUGS (1)
  1. ALEVE TABLET [Suspect]
     Indication: BACK PAIN
     Dosage: 2 DF, QD
     Route: 048

REACTIONS (2)
  - Dizziness [Not Recovered/Not Resolved]
  - Incorrect drug administration duration [None]
